FAERS Safety Report 9807664 (Version 5)
Quarter: 2015Q1

REPORT INFORMATION
  Report Type: Spontaneous
  Country: US (occurrence: US)
  Receive Date: 20140110
  Receipt Date: 20150120
  Transmission Date: 20150721
  Serious: Yes (Hospitalization, Disabling, Other)
  Sender: FDA-Public Use
  Company Number: US-009507513-1109USA02515

PATIENT
  Sex: Male

DRUGS (1)
  1. PROPECIA [Suspect]
     Active Substance: FINASTERIDE
     Indication: ALOPECIA
     Dosage: 1 MG, QD
     Route: 048
     Dates: start: 200301

REACTIONS (13)
  - Cerebrovascular accident [Not Recovered/Not Resolved]
  - Testicular pain [Unknown]
  - Emotional distress [Unknown]
  - Emotional distress [Unknown]
  - Disturbance in attention [Unknown]
  - Confusional state [Unknown]
  - Suicidal ideation [Unknown]
  - Sexual dysfunction [Unknown]
  - Anxiety [Unknown]
  - Vertigo [Unknown]
  - Anxiety [Unknown]
  - Loss of libido [Unknown]
  - Depression [Unknown]

NARRATIVE: CASE EVENT DATE: 2005
